FAERS Safety Report 5238590-1 (Version None)
Quarter: 2007Q1

REPORT INFORMATION
  Report Type: 
  Country: None (occurrence: None)
  Receive Date: 20070214
  Receipt Date: 20070214
  Transmission Date: 20070707
  Serious: Yes (Hospitalization)
  Sender: FDA-Public Use
  Company Number: None

PATIENT
  Age: 59 Year
  Sex: Female
  Weight: 55 kg

DRUGS (1)
  1. LISINOPRIL [Suspect]
     Indication: HYPERTENSION
     Dosage: 20 MG PO DAILY } 1 YEAR PTA

REACTIONS (1)
  - ANGIOEDEMA [None]
